FAERS Safety Report 20868037 (Version 1)
Quarter: 2022Q2

REPORT INFORMATION
  Report Type: Spontaneous
  Country: US (occurrence: None)
  Receive Date: 20220524
  Receipt Date: 20220524
  Transmission Date: 20220720
  Serious: Yes (Death)
  Sender: FDA-Public Use
  Company Number: None

PATIENT
  Age: 50 Year
  Sex: Female
  Weight: 51.71 kg

DRUGS (2)
  1. INLYTA [Suspect]
     Active Substance: AXITINIB
     Indication: Malignant pleural effusion
     Dosage: FREQUENCY : TWICE A DAY;?
     Route: 048
     Dates: start: 20220112
  2. ACETAMINOHEN [Concomitant]

REACTIONS (1)
  - Death [None]
